FAERS Safety Report 8769252 (Version 3)
Quarter: 2012Q4

REPORT INFORMATION
  Report Type: 
  Country: US (occurrence: US)
  Receive Date: 20120905
  Receipt Date: 20121119
  Transmission Date: 20130627
  Serious: Yes (Hospitalization, Other)
  Sender: FDA-Public Use
  Company Number: US-009507513-2012SP022356

PATIENT
  Age: 21 Year
  Sex: Female
  Weight: 89.34 kg

DRUGS (1)
  1. IMPLANON [Suspect]
     Dosage: UNK
     Route: 059
     Dates: start: 20110513, end: 20120504

REACTIONS (7)
  - Pulmonary embolism [Unknown]
  - Asthma [Unknown]
  - Device breakage [Unknown]
  - Nausea [Not Recovered/Not Resolved]
  - Vomiting [Not Recovered/Not Resolved]
  - Implant site scar [Unknown]
  - Weight increased [Unknown]
